FAERS Safety Report 7685275-8 (Version None)
Quarter: 2011Q3

REPORT INFORMATION
  Report Type: 
  Country: None (occurrence: None)
  Receive Date: 20110816
  Receipt Date: 20110810
  Transmission Date: 20111222
  Serious: Yes (Hospitalization)
  Sender: FDA-Public Use
  Company Number: FR-PFIZER INC-2011183206

PATIENT
  Age: 65 Year
  Sex: Female
  Weight: 94 kg

DRUGS (9)
  1. ATORVASTATIN CALCIUM [Concomitant]
     Indication: DYSLIPIDAEMIA
     Dosage: 1 DF, 1X/DAY
     Route: 048
  2. TENORMIN [Concomitant]
     Indication: HYPERTENSION
     Dosage: 1 DF, 1X/DAY
     Route: 048
  3. FLUOROURACIL [Suspect]
     Indication: BREAST CANCER IN SITU
     Dosage: 1000 MG, CYCLIC
     Route: 042
     Dates: start: 20110530, end: 20110530
  4. INDAPAMIDE [Concomitant]
     Indication: HYPERTENSION
     Dosage: 1 DF, 1X/DAY
     Route: 048
  5. EPIRUBICIN HYDROCHLORIDE [Suspect]
     Indication: BREAST CANCER IN SITU
     Dosage: 1 DF, CYCLIC
     Route: 042
     Dates: start: 20110530, end: 20110530
  6. CYCLOPHOSPHAMIDE [Suspect]
     Dosage: 1 DF, CYCLIC
     Route: 042
     Dates: start: 20110630, end: 20110630
  7. EPIRUBICIN HYDROCHLORIDE [Suspect]
     Dosage: 1 DF, CYCLIC
     Route: 042
     Dates: start: 20110630, end: 20110630
  8. FLUOROURACIL [Suspect]
     Dosage: 1000 MG, CYCLIC
     Route: 042
     Dates: start: 20110630, end: 20110630
  9. CYCLOPHOSPHAMIDE [Suspect]
     Indication: BREAST CANCER IN SITU
     Dosage: 1 DF, CYCLIC
     Route: 042
     Dates: start: 20110530, end: 20110530

REACTIONS (1)
  - PRINZMETAL ANGINA [None]
